FAERS Safety Report 25105994 (Version 1)
Quarter: 2025Q1

REPORT INFORMATION
  Report Type: Spontaneous
  Country: US (occurrence: US)
  Receive Date: 20250321
  Receipt Date: 20250321
  Transmission Date: 20250408
  Serious: No
  Sender: PFIZER
  Company Number: US-PFIZER INC-202500059828

PATIENT
  Age: 14 Year
  Sex: Male
  Weight: 62.2 kg

DRUGS (2)
  1. GENOTROPIN [Suspect]
     Active Substance: SOMATROPIN
     Indication: Hypopituitarism
     Dosage: 2.2 MG/DAY 7 DAYS/WEEK
  2. GENOTROPIN [Suspect]
     Active Substance: SOMATROPIN
     Dosage: 2.4 MG, DAILY

REACTIONS (4)
  - Acne [Unknown]
  - Hair growth abnormal [Unknown]
  - Skin odour abnormal [Unknown]
  - Hypertrichosis [Not Recovered/Not Resolved]
